FAERS Safety Report 12431253 (Version 2)
Quarter: 2016Q2

REPORT INFORMATION
  Report Type: Spontaneous
  Country: US (occurrence: US)
  Receive Date: 20160603
  Receipt Date: 20160612
  Transmission Date: 20160815
  Serious: Yes (Hospitalization, Other)
  Sender: FDA-Public Use
  Company Number: US-AMGEN-USASP2016069037

PATIENT
  Age: 21 Year
  Sex: Female

DRUGS (1)
  1. ENBREL [Suspect]
     Active Substance: ETANERCEPT
     Indication: RHEUMATOID ARTHRITIS
     Dosage: UNK
     Route: 065
     Dates: start: 201605

REACTIONS (5)
  - Activities of daily living impaired [Unknown]
  - Respiratory disorder [Recovering/Resolving]
  - General physical health deterioration [Recovering/Resolving]
  - Ill-defined disorder [Unknown]
  - Catatonia [Unknown]

NARRATIVE: CASE EVENT DATE: 201605
